FAERS Safety Report 8740587 (Version 2)
Quarter: 2012Q4

REPORT INFORMATION
  Report Type: 
  Country: US (occurrence: US)
  Receive Date: 20120823
  Receipt Date: 20121203
  Transmission Date: 20130627
  Serious: Yes (Hospitalization, Other)
  Sender: FDA-Public Use
  Company Number: US-009507513-1208USA007473

PATIENT

DRUGS (1)
  1. NUVARING [Suspect]
     Indication: MENSTRUATION IRREGULAR
     Dosage: UNK
     Route: 067
     Dates: start: 20100809, end: 20100829

REACTIONS (7)
  - Proteinuria [Unknown]
  - Pulmonary embolism [Unknown]
  - Essential tremor [Unknown]
  - Migraine [Unknown]
  - Hyperlipidaemia [Unknown]
  - Hypokalaemia [Recovered/Resolved]
  - Dysuria [Recovered/Resolved]
